FAERS Safety Report 9736508 (Version 1)
Quarter: 2013Q4

REPORT INFORMATION
  Report Type: Spontaneous
  Country: NO (occurrence: NO)
  Receive Date: 20131206
  Receipt Date: 20131206
  Transmission Date: 20140711
  Serious: Yes (Other)
  Sender: FDA-Public Use
  Company Number: NO-JNJFOC-20131118208

PATIENT
  Age: 26 Year
  Sex: Female

DRUGS (8)
  1. REMICADE [Suspect]
     Indication: RHEUMATOID ARTHRITIS
     Route: 042
     Dates: start: 20130212
  2. REMICADE [Suspect]
     Indication: RHEUMATOID ARTHRITIS
     Dosage: PATIENT^S 7TH INFUSION
     Route: 042
     Dates: start: 20131107, end: 20131107
  3. REMICADE [Suspect]
     Indication: RHEUMATOID ARTHRITIS
     Dosage: PATIENT^S LAST INFUSION (6TH)
     Route: 042
     Dates: start: 2013
  4. DUROFERON [Concomitant]
     Route: 048
  5. CALCIGRAN FORTE [Concomitant]
     Indication: RHEUMATOID ARTHRITIS
     Route: 048
  6. FOLSYRE NAF [Concomitant]
     Indication: RHEUMATOID ARTHRITIS
     Dosage: WEEKS
     Route: 048
  7. METEX [Concomitant]
     Indication: RHEUMATOID ARTHRITIS
     Dosage: WEEKS
     Route: 058
  8. PREDNISOLONE [Concomitant]
     Indication: RHEUMATOID ARTHRITIS
     Route: 048

REACTIONS (8)
  - Infusion related reaction [Recovered/Resolved]
  - Chest discomfort [Recovered/Resolved]
  - Respiratory rate increased [Recovered/Resolved]
  - Hypotension [Recovered/Resolved]
  - Heart rate increased [Recovered/Resolved]
  - Vomiting [Recovered/Resolved]
  - Nausea [Recovered/Resolved]
  - Cough [Recovered/Resolved]
